FAERS Safety Report 5609106-2 (Version None)
Quarter: 2008Q1

REPORT INFORMATION
  Report Type: 
  Country: None (occurrence: None)
  Receive Date: 20080131
  Receipt Date: 20080129
  Transmission Date: 20080703
  Serious: Yes (Hospitalization)
  Sender: FDA-Public Use
  Company Number: US-BRISTOL-MYERS SQUIBB COMPANY-14057434

PATIENT
  Age: 65 Year
  Sex: Male

DRUGS (3)
  1. CISPLATIN [Suspect]
     Indication: LARYNGEAL CANCER
     Route: 042
     Dates: start: 20080121
  2. CETUXIMAB [Suspect]
     Indication: LARYNGEAL CANCER
     Route: 042
     Dates: start: 20071106
  3. RADIOTHERAPY [Suspect]
     Indication: LARYNGEAL CANCER

REACTIONS (2)
  - MALAISE [None]
  - MUCOSAL INFLAMMATION [None]
